FAERS Safety Report 8097764-5 (Version None)
Quarter: 2012Q1

REPORT INFORMATION
  Report Type: 
  Country: None (occurrence: None)
  Receive Date: 20120128
  Receipt Date: 20110717
  Transmission Date: 20120608
  Serious: No
  Sender: FDA-Public Use
  Company Number: US-ABBOTT-11P-163-0839875-00

PATIENT
  Sex: Male

DRUGS (11)
  1. OXYCODONE HCL [Concomitant]
     Indication: FIBROMYALGIA
     Dosage: 5-325MG
  2. OMEPRAZOLE [Concomitant]
     Indication: ABDOMINAL DISCOMFORT
  3. FISH OIL [Concomitant]
     Indication: SUPPLEMENTATION THERAPY
  4. HUMIRA [Suspect]
     Indication: RHEUMATOID ARTHRITIS
     Dates: start: 20110716
  5. VIT E [Concomitant]
     Indication: PRODUCT USED FOR UNKNOWN INDICATION
  6. STOOL SOFTNER [Concomitant]
     Indication: CONSTIPATION
  7. NIACIN [Concomitant]
     Indication: BLOOD CHOLESTEROL INCREASED
  8. LISINOPRIL [Concomitant]
     Indication: HYPERTENSION
  9. HYDROCHLOROTHIAZIDE [Concomitant]
     Indication: HYPERTENSION
  10. KADIAN CR [Concomitant]
     Indication: FIBROMYALGIA
  11. VITAMIN B-12 [Concomitant]
     Indication: VITAMIN SUPPLEMENTATION

REACTIONS (12)
  - DIARRHOEA [None]
  - PANIC ATTACK [None]
  - PARANASAL SINUS HYPERSECRETION [None]
  - FLUSHING [None]
  - VOMITING [None]
  - ANXIETY [None]
  - DYSPHAGIA [None]
  - FATIGUE [None]
  - PAIN [None]
  - DYSPNOEA [None]
  - FEELING COLD [None]
  - ABDOMINAL PAIN UPPER [None]
